FAERS Safety Report 4976008-4 (Version None)
Quarter: 2006Q2

REPORT INFORMATION
  Report Type: 
  Country: None (occurrence: None)
  Receive Date: 20060412
  Receipt Date: 20060407
  Transmission Date: 20061013
  Serious: Yes (Hospitalization)
  Sender: FDA-Public Use
  Company Number: 200610106BFR

PATIENT
  Age: 54 Year
  Sex: Male
  Weight: 93 kg

DRUGS (18)
  1. TRASYLOL [Suspect]
     Indication: AORTIC DISSECTION
     Dosage: 3.5 MIU, TOTAL DAILY, INTRAVENOUS
     Route: 042
     Dates: start: 20060110
  2. TRASYLOL [Suspect]
     Indication: AORTIC SURGERY
     Dosage: 3.5 MIU, TOTAL DAILY, INTRAVENOUS
     Route: 042
     Dates: start: 20060110
  3. CEFUROXIME [Suspect]
     Indication: AORTIC DISSECTION
     Dosage: 3000 MG, TOTAL DAILY, INTRAVENOUS
     Route: 042
     Dates: start: 20060110
  4. CEFUROXIME [Suspect]
     Indication: AORTIC SURGERY
     Dosage: 3000 MG, TOTAL DAILY, INTRAVENOUS
     Route: 042
     Dates: start: 20060110
  5. CLOTTAGEN (FIBRINOGEN) [Suspect]
     Indication: AORTIC DISSECTION
     Dosage: 4 G, TOTAL DAILY, INTRAVENOUS
     Route: 042
     Dates: start: 20060110
  6. CLOTTAGEN (FIBRINOGEN) [Suspect]
     Indication: AORTIC SURGERY
     Dosage: 4 G, TOTAL DAILY, INTRAVENOUS
     Route: 042
     Dates: start: 20060110
  7. HEPARIN CALCIUM [Suspect]
     Indication: AORTIC DISSECTION
     Dosage: 3 KIU, TOTAL DAILY, INTRAVENOUS
     Route: 042
     Dates: start: 20060110
  8. HEPARIN CALCIUM [Suspect]
     Indication: AORTIC SURGERY
     Dosage: 3 KIU, TOTAL DAILY, INTRAVENOUS
     Route: 042
     Dates: start: 20060110
  9. PROTAMINE [Suspect]
     Indication: AORTIC DISSECTION
     Dosage: 4 KIU, TOTAL DAILY, INTRAVENOUS
     Route: 042
     Dates: start: 20060110
  10. PROTAMINE [Suspect]
     Indication: AORTIC SURGERY
     Dosage: 4 KIU, TOTAL DAILY, INTRAVENOUS
     Route: 042
     Dates: start: 20060110
  11. ETOMIDATE [Concomitant]
  12. ULTIVA [Concomitant]
  13. SUFENTA [Concomitant]
  14. NIMBEX [Concomitant]
  15. SEVORANE [Concomitant]
  16. INSULIN [Concomitant]
  17. RED BLOOD CELLS [Concomitant]
  18. PLATELETS [Concomitant]

REACTIONS (2)
  - POST PROCEDURAL COMPLICATION [None]
  - URTICARIA GENERALISED [None]
